FAERS Safety Report 11038824 (Version 1)
Quarter: 2015Q2

REPORT INFORMATION
  Report Type: Report from Study
  Country: FR (occurrence: FR)
  Receive Date: 20150416
  Receipt Date: 20150416
  Transmission Date: 20150821
  Serious: Yes (Disabling)
  Sender: FDA-Public Use
  Company Number: FR-MERCK-1504FRA005082

PATIENT
  Sex: Male
  Weight: 64 kg

DRUGS (8)
  1. PEGINTERFERON ALFA-2B [Suspect]
     Active Substance: PEGINTERFERON ALFA-2B
     Indication: ACUTE MYELOID LEUKAEMIA
     Dosage: 30MG, QW
     Dates: start: 20140407, end: 20141021
  2. LUMIRELAX (METHOCARBAMOL) [Concomitant]
     Dosage: UNK
     Dates: start: 201502
  3. KETUM [Concomitant]
     Active Substance: KETOPROFEN
     Dosage: UNK
     Dates: start: 201502
  4. LEVOTHYROX [Concomitant]
     Active Substance: LEVOTHYROXINE
     Indication: THYROIDECTOMY
     Dosage: UNK
     Dates: start: 201502
  5. IXPRIM (ACETAMINOPHEN (+) TRAMADOL HYDROCHLORIDE) [Concomitant]
     Active Substance: ACETAMINOPHEN\TRAMADOL
     Dosage: UNK
     Dates: start: 201502
  6. TITANOREINE (CARRAGEENAN (+) TITANIUM DIOXIDE (+) ZINC OXIDE) [Concomitant]
     Indication: HAEMORRHOIDS
     Dosage: UNK
     Dates: start: 201502
  7. SPRYCEL [Suspect]
     Active Substance: DASATINIB
  8. SPAGULAX [Concomitant]
     Active Substance: PLANTAGO OVATA SEED
     Dosage: UNK
     Dates: start: 201502

REACTIONS (3)
  - Middle insomnia [Recovering/Resolving]
  - Haemorrhoids [Recovering/Resolving]
  - Anal fissure [Recovering/Resolving]
